FAERS Safety Report 23409567 (Version 1)
Quarter: 2024Q1

REPORT INFORMATION
  Report Type: Spontaneous
  Country: US (occurrence: None)
  Receive Date: 20240116
  Receipt Date: 20240116
  Transmission Date: 20240409
  Serious: Yes (Death)
  Sender: FDA-Public Use
  Company Number: None

PATIENT
  Sex: Male

DRUGS (3)
  1. ENBREL [Suspect]
     Active Substance: ETANERCEPT
     Dosage: FREQUENCY : WEEKLY;?
     Route: 058
     Dates: start: 202208
  2. OFEV [Concomitant]
     Dosage: 50MG EVERY 7 DAYS SC
     Dates: start: 202208
  3. OFEV [Concomitant]

REACTIONS (1)
  - Death [None]
